FAERS Safety Report 6697981-2 (Version None)
Quarter: 2010Q2

REPORT INFORMATION
  Report Type: 
  Country: None (occurrence: None)
  Receive Date: 20100427
  Receipt Date: 20100422
  Transmission Date: 20101027
  Serious: Yes (Other)
  Sender: FDA-Public Use
  Company Number: US-ASTRAZENECA-2007UW06053

PATIENT
  Age: 40 Year
  Sex: Female
  Weight: 85.7 kg

DRUGS (31)
  1. SEROQUEL [Suspect]
     Indication: DEPRESSION
     Route: 048
     Dates: start: 19971001, end: 20020101
  2. SEROQUEL [Suspect]
     Indication: SLEEP DISORDER
     Route: 048
     Dates: start: 19971001, end: 20020101
  3. SEROQUEL [Suspect]
     Dosage: 25 TO 50 MG, FLUCTUATING
     Route: 048
     Dates: start: 20040708
  4. SEROQUEL [Suspect]
     Dosage: 25 TO 50 MG, FLUCTUATING
     Route: 048
     Dates: start: 20040708
  5. SEROQUEL [Suspect]
     Route: 048
     Dates: end: 20041201
  6. SEROQUEL [Suspect]
     Route: 048
     Dates: end: 20041201
  7. THEOPHYLLINE [Concomitant]
     Dates: start: 20020726
  8. FLEXERIL [Concomitant]
     Dosage: AS NEEDED
     Dates: start: 19971208
  9. LORTAB [Concomitant]
     Indication: PAIN
     Dates: start: 20020726
  10. REMERON [Concomitant]
     Dosage: 115 MG TO 30 MG, FLUCTUATING
     Dates: start: 19971208, end: 20020801
  11. STELAZINE [Concomitant]
     Dates: start: 19980507
  12. TRAZODONE HCL [Concomitant]
     Dosage: 50-100MG
     Dates: start: 19990201, end: 20020901
  13. ACTOS [Concomitant]
     Dates: start: 20040522
  14. ACTOS [Concomitant]
     Dates: start: 20090422
  15. SYNTHROID [Concomitant]
     Dates: start: 20040522
  16. NEURONTIN [Concomitant]
     Dates: start: 20040522
  17. LIPITOR [Concomitant]
     Dosage: 10 MG TO 20 MG, FLUCTUATING
     Dates: start: 20020726
  18. LIPITOR [Concomitant]
     Route: 048
     Dates: start: 20040629
  19. LEXAPRO [Concomitant]
     Dates: start: 20040522
  20. LEXAPRO [Concomitant]
     Route: 048
     Dates: start: 20040629
  21. ATIVAN [Concomitant]
     Dates: start: 20040708
  22. ATIVAN [Concomitant]
     Route: 048
     Dates: start: 20040629
  23. METOPROLOL [Concomitant]
     Dates: start: 20060420
  24. SINGULAIR [Concomitant]
     Dates: start: 20060420
  25. SINGULAIR [Concomitant]
     Dates: start: 20090422
  26. ZOLOFT [Concomitant]
     Dates: start: 20060420
  27. AVANDIA [Concomitant]
     Dates: start: 20041007
  28. THORAZINE [Concomitant]
  29. CRESTOR [Concomitant]
     Route: 048
     Dates: start: 20090423
  30. PREMARIN [Concomitant]
     Route: 048
     Dates: start: 20090505
  31. LISINOPRIL [Concomitant]
     Route: 048
     Dates: start: 20090604

REACTIONS (4)
  - BLADDER DISORDER [None]
  - DIABETIC NEUROPATHY [None]
  - NEUROPATHY PERIPHERAL [None]
  - TYPE 2 DIABETES MELLITUS [None]
